FAERS Safety Report 18784514 (Version 1)
Quarter: 2021Q1

REPORT INFORMATION
  Report Type: Report from Study
  Country: US (occurrence: US)
  Receive Date: 20210125
  Receipt Date: 20210125
  Transmission Date: 20210419
  Serious: Yes (Hospitalization)
  Sender: FDA-Public Use
  Company Number: US-JNJFOC-20210128425

PATIENT
  Age: 54 Year
  Sex: Male

DRUGS (3)
  1. SPRAVATO [Suspect]
     Active Substance: ESKETAMINE
     Indication: DEPRESSION
     Dosage: TOTAL ONE DOSE
     Dates: start: 20210105, end: 20210105
  2. KLONOPIN [Concomitant]
     Active Substance: CLONAZEPAM
  3. SPRAVATO [Suspect]
     Active Substance: ESKETAMINE
     Dates: start: 20210112

REACTIONS (6)
  - Dissociation [Recovered/Resolved]
  - Abdominal distension [Recovered/Resolved]
  - Diarrhoea [Recovered/Resolved]
  - Vomiting [Recovered/Resolved]
  - Gastrointestinal pain [Recovered/Resolved]
  - Sedation [Recovered/Resolved]

NARRATIVE: CASE EVENT DATE: 20210112
